FAERS Safety Report 5914230-0 (Version None)
Quarter: 2008Q4

REPORT INFORMATION
  Report Type: 
  Country: None (occurrence: None)
  Receive Date: 20081009
  Receipt Date: 20081007
  Transmission Date: 20090506
  Serious: Yes (Other)
  Sender: FDA-Public Use
  Company Number: AU-B.I. PHARMACEUTICALS,INC./RIDGEFIELD-2008-BP-15443AU

PATIENT
  Sex: Male

DRUGS (2)
  1. CATAPRES [Suspect]
     Indication: ABNORMAL BEHAVIOUR
     Dosage: 100MCG
     Route: 048
  2. CATAPRES [Suspect]
     Indication: SLEEP DISORDER

REACTIONS (1)
  - OVERDOSE [None]
